FAERS Safety Report 11806800 (Version 1)
Quarter: 2015Q4

REPORT INFORMATION
  Report Type: Spontaneous
  Country: US (occurrence: US)
  Receive Date: 20151207
  Receipt Date: 20151207
  Transmission Date: 20160305
  Serious: Yes (Other)
  Sender: FDA-Public Use
  Company Number: US-SMITH AND NEPHEW, INC-2015SMT00575

PATIENT
  Age: 53 Year
  Sex: Male
  Weight: 115.65 kg

DRUGS (2)
  1. UNSPEICIFED BLOOD PRESSURE MEDICATION(S) [Concomitant]
  2. REGRANEX [Suspect]
     Active Substance: BECAPLERMIN
     Indication: DIABETIC FOOT
     Dosage: UNK, 1X/WEEK
     Dates: start: 201511

REACTIONS (3)
  - Medical device implantation [Unknown]
  - Inappropriate schedule of drug administration [Not Recovered/Not Resolved]
  - Wound complication [Unknown]

NARRATIVE: CASE EVENT DATE: 201511
